FAERS Safety Report 23861898 (Version 1)
Quarter: 2024Q2

REPORT INFORMATION
  Report Type: Report from Study
  Country: US (occurrence: US)
  Receive Date: 20240516
  Receipt Date: 20240516
  Transmission Date: 20240716
  Serious: Yes (Hospitalization)
  Sender: FDA-Public Use
  Company Number: US-GILEAD-2024-0667832

PATIENT
  Age: 62 Year
  Sex: Male

DRUGS (19)
  1. AZTREONAM LYSINE [Suspect]
     Active Substance: AZTREONAM LYSINE
     Indication: Bronchiectasis
     Dosage: 75 MG, TID VIA NEBULIZER FOR 2 WEEKS ON, THEN 2 WEEKS OFF
     Route: 055
  2. AZTREONAM LYSINE [Suspect]
     Active Substance: AZTREONAM LYSINE
     Indication: Cystic fibrosis
     Dosage: 75 MG, TID FOR 2 WEEKS ON THEN 2 WEEKS OFF, REPEAT CYCLE
     Route: 055
     Dates: start: 20240330
  3. VORICONAZOLE [Concomitant]
     Active Substance: VORICONAZOLE
  4. XOLAIR [Concomitant]
     Active Substance: OMALIZUMAB
  5. XYZAL [Concomitant]
     Active Substance: LEVOCETIRIZINE DIHYDROCHLORIDE
  6. CENTRUM SILVER ADVANCE [Concomitant]
  7. MELATONIN [Concomitant]
     Active Substance: MELATONIN
  8. TOBRAMYCIN [Concomitant]
     Active Substance: TOBRAMYCIN\TOBRAMYCIN SULFATE
  9. KEPPRA [Concomitant]
     Active Substance: LEVETIRACETAM
  10. TRELEGY ELLIPTA [Concomitant]
     Active Substance: FLUTICASONE FUROATE\UMECLIDINIUM BROMIDE\VILANTEROL TRIFENATATE
  11. LEVOTHYROXINE [Concomitant]
     Active Substance: LEVOTHYROXINE\LEVOTHYROXINE SODIUM
  12. PREDNISONE [Concomitant]
     Active Substance: PREDNISONE
  13. METFORMIN [Concomitant]
     Active Substance: METFORMIN HYDROCHLORIDE
  14. HUMALOG [Concomitant]
     Active Substance: INSULIN LISPRO
  15. LANTUS [Concomitant]
     Active Substance: INSULIN GLARGINE
  16. ALBUTEROL [Concomitant]
     Active Substance: ALBUTEROL
  17. CENTRUM SILVER [ASCORBIC ACID;CALCIUM;MINERALS NOS;RETINOL;TOCOPHERYL [Concomitant]
  18. DUPIXENT [Concomitant]
     Active Substance: DUPILUMAB
  19. MUCUS RELIEF [Concomitant]
     Active Substance: GUAIFENESIN

REACTIONS (4)
  - Lung disorder [Unknown]
  - Dyspnoea [Unknown]
  - Infection [Unknown]
  - Off label use [Not Recovered/Not Resolved]
